FAERS Safety Report 10421028 (Version 1)
Quarter: 2014Q3

REPORT INFORMATION
  Report Type: Spontaneous
  Country: FR (occurrence: None)
  Receive Date: 20140828
  Receipt Date: 20140828
  Transmission Date: 20150326
  Serious: Yes (Hospitalization)
  Sender: FDA-Public Use
  Company Number: 2502512

PATIENT
  Age: 47 Year
  Sex: Male

DRUGS (5)
  1. PARACETAMOL [Suspect]
     Active Substance: ACETAMINOPHEN
     Indication: PAIN
     Route: 042
     Dates: start: 20140711, end: 20140711
  2. DOLIPRANE [Concomitant]
     Active Substance: ACETAMINOPHEN
  3. NEFOPAM [Concomitant]
     Active Substance: NEFOPAM
  4. PAMIDRONIC ACID [Suspect]
     Active Substance: PAMIDRONIC ACID
     Indication: COMPLEX REGIONAL PAIN SYNDROME
     Route: 042
     Dates: start: 20140711, end: 20140711
  5. ZOLPIDEM [Concomitant]
     Active Substance: ZOLPIDEM\ZOLPIDEM TARTRATE

REACTIONS (1)
  - Thrombophlebitis superficial [None]

NARRATIVE: CASE EVENT DATE: 20140714
